FAERS Safety Report 17716940 (Version 1)
Quarter: 2020Q2

REPORT INFORMATION
  Report Type: Spontaneous
  Country: GB (occurrence: GB)
  Receive Date: 20200428
  Receipt Date: 20200428
  Transmission Date: 20200714
  Serious: Yes (Other)
  Sender: FDA-Public Use
  Company Number: GB-AMGEN-GBRSP2020067030

PATIENT
  Age: 24 Year
  Sex: Male
  Weight: 123.6 kg

DRUGS (1)
  1. AMGEVITA [Suspect]
     Active Substance: ADALIMUMAB
     Indication: CROHN^S DISEASE
     Dosage: 40 MILLIGRAM
     Route: 058
     Dates: start: 20190520, end: 20190717

REACTIONS (10)
  - Fatigue [Unknown]
  - Device defective [Unknown]
  - Arthralgia [Unknown]
  - Allergy to animal [Unknown]
  - Product substitution issue [Unknown]
  - Bowel movement irregularity [Unknown]
  - Diarrhoea [Unknown]
  - Injection site pain [Unknown]
  - Abdominal pain upper [Unknown]
  - Crohn^s disease [Unknown]
